FAERS Safety Report 15476207 (Version 1)
Quarter: 2018Q4

REPORT INFORMATION
  Report Type: Spontaneous
  Country: IN (occurrence: IN)
  Receive Date: 20181009
  Receipt Date: 20181009
  Transmission Date: 20190205
  Serious: Yes (Other)
  Sender: FDA-Public Use
  Company Number: IN-ROCHE-2195406

PATIENT

DRUGS (1)
  1. ACCENTRIX [Suspect]
     Active Substance: RANIBIZUMAB
     Indication: AGE-RELATED MACULAR DEGENERATION
     Dosage: UNK UNK, ONCE/SINGLE
     Route: 031
     Dates: start: 20161011

REACTIONS (2)
  - Hyalosis asteroid [Not Recovered/Not Resolved]
  - Vitreous haemorrhage [Unknown]

NARRATIVE: CASE EVENT DATE: 20161027
